FAERS Safety Report 8882019 (Version 2)
Quarter: 2012Q4

REPORT INFORMATION
  Report Type: 
  Country: US (occurrence: US)
  Receive Date: 20121102
  Receipt Date: 20121228
  Transmission Date: 20130627
  Serious: Yes (Other)
  Sender: FDA-Public Use
  Company Number: US-AMGEN-USASP2012069243

PATIENT
  Age: 68 Year
  Sex: Female

DRUGS (2)
  1. ARANESP [Suspect]
     Indication: ANAEMIA
     Dosage: 100 mug, qwk
     Dates: start: 2011, end: 201207
  2. INTERFERON [Concomitant]
     Dosage: UNK

REACTIONS (3)
  - Aplasia pure red cell [Unknown]
  - Anti-erythropoietin antibody positive [Unknown]
  - Neutralising antibodies positive [Unknown]
